FAERS Safety Report 26123455 (Version 2)
Quarter: 2025Q4

REPORT INFORMATION
  Report Type: Spontaneous
  Country: US (occurrence: US)
  Receive Date: 20251204
  Receipt Date: 20251210
  Transmission Date: 20260117
  Serious: Yes (Hospitalization)
  Sender: ARDELYX
  Company Number: US-ARDELYX-2025ARDX008772

PATIENT
  Age: 67 Year
  Sex: Female

DRUGS (1)
  1. IBSRELA [Suspect]
     Active Substance: TENAPANOR HYDROCHLORIDE
     Indication: Irritable bowel syndrome
     Dosage: 50 MG
     Route: 048

REACTIONS (3)
  - Hospitalisation [Unknown]
  - Stress [Unknown]
  - Product use issue [Unknown]

NARRATIVE: CASE EVENT DATE: 20250901
